FAERS Safety Report 7308875-3 (Version None)
Quarter: 2011Q1

REPORT INFORMATION
  Report Type: 
  Country: None (occurrence: None)
  Receive Date: 20110223
  Receipt Date: 20100727
  Transmission Date: 20110831
  Serious: Yes (Other)
  Sender: FDA-Public Use
  Company Number: US-NOVOPROD-312170

PATIENT
  Age: 75 Year
  Sex: Male

DRUGS (2)
  1. NOVOSEVEN [Suspect]
     Indication: CEREBRAL HAEMORRHAGE
     Dosage: 62.3 UG/KG
  2. FRESH FROZEN PLASMA [Concomitant]
     Dosage: 7 U, UNK

REACTIONS (1)
  - DEEP VEIN THROMBOSIS [None]
